FAERS Safety Report 24857051 (Version 1)
Quarter: 2025Q1

REPORT INFORMATION
  Report Type: Spontaneous
  Country: US (occurrence: None)
  Receive Date: 20250116
  Receipt Date: 20250116
  Transmission Date: 20250408
  Serious: Yes (Life-Threatening, Hospitalization)
  Sender: FDA-CTU
  Company Number: None

PATIENT
  Age: 50 Year
  Sex: Female
  Weight: 88.5 kg

DRUGS (6)
  1. CEFAZOLIN [Suspect]
     Active Substance: CEFAZOLIN
     Indication: Antibiotic prophylaxis
     Route: 042
  2. KETAMINE [Suspect]
     Active Substance: KETAMINE
  3. LIDOCAINE [Suspect]
     Active Substance: LIDOCAINE
  4. FENTANYL [Suspect]
     Active Substance: FENTANYL
  5. ROCURONIUM [Suspect]
     Active Substance: ROCURONIUM BROMIDE
  6. PROPOFOL [Suspect]
     Active Substance: PROPOFOL

REACTIONS (4)
  - Drug hypersensitivity [None]
  - Anaphylactic reaction [None]
  - Anaesthetic complication cardiac [None]
  - Pulseless electrical activity [None]

NARRATIVE: CASE EVENT DATE: 20240603
